FAERS Safety Report 4842323-8 (Version None)
Quarter: 2005Q4

REPORT INFORMATION
  Report Type: 
  Country: None (occurrence: None)
  Receive Date: 20051129
  Receipt Date: 20051121
  Transmission Date: 20060501
  Serious: Yes (Disabling)
  Sender: FDA-Public Use
  Company Number: 163-20785-05090197

PATIENT
  Age: 49 Year
  Sex: Male

DRUGS (2)
  1. THALOMID [Suspect]
     Indication: MULTIPLE MYELOMA
     Dosage: 100 MG, DAILY, ORAL
     Route: 048
     Dates: start: 20040501, end: 20041001
  2. THALOMID [Suspect]
     Indication: MULTIPLE MYELOMA
     Dosage: 100 MG, DAILY, ORAL
     Route: 048
     Dates: start: 20050401

REACTIONS (10)
  - ABDOMINAL DISTENSION [None]
  - BODY HEIGHT DECREASED [None]
  - DISEASE PROGRESSION [None]
  - FLATULENCE [None]
  - HYPERTENSION [None]
  - INCREASED APPETITE [None]
  - MUSCLE SPASMS [None]
  - NEUROPATHY PERIPHERAL [None]
  - SPINAL FRACTURE [None]
  - STEM CELL TRANSPLANT [None]
